FAERS Safety Report 21852409 (Version 2)
Quarter: 2023Q1

REPORT INFORMATION
  Report Type: Report from Study
  Country: BE (occurrence: None)
  Receive Date: 20230112
  Receipt Date: 20230120
  Transmission Date: 20230418
  Serious: Yes (Hospitalization)
  Sender: FDA-Public Use
  Company Number: BE-ROCHE-3261012

PATIENT
  Age: 80 Year
  Sex: Female
  Weight: 41 kg

DRUGS (3)
  1. PERTUZUMAB\TRASTUZUMAB [Suspect]
     Active Substance: PERTUZUMAB\TRASTUZUMAB
     Indication: Breast cancer
     Dosage: ON 28/DEC/2022, RECEIVED LAST DOSE (1200 MG)  PRIOR SAE.
     Route: 058
     Dates: start: 20221205
  2. PACLITAXEL [Suspect]
     Active Substance: PACLITAXEL
     Indication: Breast cancer
     Dosage: ON 28/DEC/2022, RECEIVED LAST DOSE ( 78 MG) PRIOR TO SAE
     Route: 042
     Dates: start: 20221205
  3. DOCETAXEL [Suspect]
     Active Substance: DOCETAXEL
     Indication: Breast cancer
     Route: 017

REACTIONS (1)
  - Cholestasis [Recovered/Resolved]

NARRATIVE: CASE EVENT DATE: 20230103
